FAERS Safety Report 6279994-8 (Version None)
Quarter: 2009Q3

REPORT INFORMATION
  Report Type: 
  Country: None (occurrence: None)
  Receive Date: 20090723
  Receipt Date: 20090422
  Transmission Date: 20100115
  Serious: Yes (Hospitalization)
  Sender: FDA-Public Use
  Company Number: US-AMGEN-KDL338151

PATIENT
  Sex: Male

DRUGS (7)
  1. EPOGEN [Suspect]
     Indication: DIALYSIS
     Route: 040
  2. COREG [Concomitant]
     Route: 048
     Dates: start: 20090326
  3. SEROQUEL [Concomitant]
     Route: 048
     Dates: start: 20090129
  4. RENAGEL [Concomitant]
     Route: 048
     Dates: start: 20090120
  5. PROTONIX [Concomitant]
     Route: 048
     Dates: start: 20090326
  6. ALPRAZOLAM [Concomitant]
     Route: 048
     Dates: start: 20090129
  7. HEPATITIS B VACCINE [Concomitant]
     Route: 030
     Dates: start: 20090425

REACTIONS (3)
  - ARTERIOVENOUS GRAFT THROMBOSIS [None]
  - PLATELET COUNT DECREASED [None]
  - THERAPEUTIC RESPONSE DECREASED [None]
